FAERS Safety Report 14298067 (Version 2)
Quarter: 2018Q1

REPORT INFORMATION
  Report Type: Report from Study
  Country: DE (occurrence: DE)
  Receive Date: 20171218
  Receipt Date: 20180102
  Transmission Date: 20180509
  Serious: Yes (Other)
  Sender: FDA-Public Use
  Company Number: DE-GILEAD-2017-0310202

PATIENT
  Age: 35 Year
  Sex: Male
  Weight: 75 kg

DRUGS (3)
  1. DOMINAL                            /00002701/ [Concomitant]
     Active Substance: ASPIRIN
     Indication: SLEEP DISORDER
     Dosage: 80 MG, TGL
     Route: 048
     Dates: start: 20121206
  2. SOFOSBUVIR W/VELPATASVIR/VOXILAPREVIR [Suspect]
     Active Substance: SOFOSBUVIR\VELPATASVIR\VOXILAPREVIR
     Indication: CHRONIC HEPATITIS C
     Dosage: 1 DF, QD
     Route: 048
     Dates: start: 20171127
  3. PREGABALIN. [Concomitant]
     Active Substance: PREGABALIN
     Indication: PSYCHOTIC DISORDER
     Dosage: 600 MG, TGL
     Route: 048
     Dates: start: 20130122

REACTIONS (1)
  - Psychotic disorder [Unknown]

NARRATIVE: CASE EVENT DATE: 20171201
